FAERS Safety Report 16414894 (Version 1)
Quarter: 2019Q2

REPORT INFORMATION
  Report Type: Spontaneous
  Country: US (occurrence: US)
  Receive Date: 20190611
  Receipt Date: 20190611
  Transmission Date: 20190711
  Serious: Yes (Other)
  Sender: FDA-Public Use
  Company Number: US-GLENMARK PHARMACEUTICALS-2019GMK041515

PATIENT
  Age: 42 Year
  Sex: Female

DRUGS (1)
  1. TOPIRAMATE. [Suspect]
     Active Substance: TOPIRAMATE
     Indication: EPILEPSY
     Dosage: 125 MG, OD
     Route: 065

REACTIONS (5)
  - Renal tubular acidosis [Unknown]
  - Metabolic acidosis [Unknown]
  - Potassium wasting nephropathy [Unknown]
  - Paralysis [Unknown]
  - Hypokalaemia [Unknown]
